FAERS Safety Report 12064691 (Version 1)
Quarter: 2016Q1

REPORT INFORMATION
  Report Type: Spontaneous
  Country: None (occurrence: US)
  Receive Date: 20160210
  Receipt Date: 20160210
  Transmission Date: 20160526
  Serious: Yes (Other)
  Sender: FDA-Public Use
  Company Number: US-MATRIXX INITIATIVES, INC.-1047635

PATIENT
  Age: 79 Year
  Sex: Male

DRUGS (5)
  1. DIURETICS-UNSPECIFIED [Concomitant]
  2. ZICAM COLD REMEDY RAPIDMELTS [Suspect]
     Active Substance: ZINC ACETATE ANHYDROUS\ZINC GLUCONATE
     Indication: NASOPHARYNGITIS
     Route: 048
     Dates: start: 20160125, end: 20160127
  3. OMEPRAZOLE. [Concomitant]
     Active Substance: OMEPRAZOLE
  4. SIMVASTATIN. [Concomitant]
     Active Substance: SIMVASTATIN
  5. TENORMIN [Concomitant]
     Active Substance: ATENOLOL

REACTIONS (5)
  - Blood magnesium decreased [None]
  - Anxiety [None]
  - Hypotension [None]
  - Hypokalaemic syndrome [None]
  - Skin neoplasm excision [None]
